FAERS Safety Report 9095840 (Version 2)
Quarter: 2013Q1

REPORT INFORMATION
  Report Type: Report from Study
  Country: CA (occurrence: CA)
  Receive Date: 20130219
  Receipt Date: 20130306
  Transmission Date: 20140127
  Serious: Yes (Hospitalization, Other)
  Sender: FDA-Public Use
  Company Number: CA-ABBOTT-13P-028-1050459-00

PATIENT
  Sex: Female
  Weight: 38.59 kg

DRUGS (2)
  1. HUMIRA PEN [Suspect]
     Indication: CROHN^S DISEASE
     Route: 058
     Dates: start: 20110617
  2. WARFARIN [Concomitant]
     Indication: PRODUCT USED FOR UNKNOWN INDICATION

REACTIONS (8)
  - Intestinal obstruction [Recovered/Resolved]
  - Crohn^s disease [Recovered/Resolved]
  - Weight decreased [Recovering/Resolving]
  - Malnutrition [Recovered/Resolved]
  - Abscess intestinal [Recovered/Resolved]
  - Blood test abnormal [Not Recovered/Not Resolved]
  - Injection site pain [Unknown]
  - Crohn^s disease [Unknown]
